FAERS Safety Report 8141629-7 (Version None)
Quarter: 2012Q1

REPORT INFORMATION
  Report Type: 
  Country: None (occurrence: None)
  Receive Date: 20120216
  Receipt Date: 20120208
  Transmission Date: 20120608
  Serious: Yes (Hospitalization, Other)
  Sender: FDA-Public Use
  Company Number: HR-JNJFOC-20111111119

PATIENT
  Sex: Female

DRUGS (5)
  1. RISPERIDONE [Suspect]
     Indication: SCHIZOPHRENIA
     Route: 030
     Dates: start: 20060901
  2. RISPERIDONE [Suspect]
     Indication: SCHIZOPHRENIA
     Dosage: 1,1,0
     Route: 048
     Dates: start: 20060901
  3. RISPERIDONE [Suspect]
     Dosage: 1,1,0
     Route: 048
     Dates: start: 20041001, end: 20051001
  4. RISPERIDONE [Suspect]
     Route: 030
  5. DIAZEPAM [Concomitant]
     Route: 065

REACTIONS (5)
  - TREATMENT NONCOMPLIANCE [None]
  - MATERNAL EXPOSURE DURING PREGNANCY [None]
  - AGGRESSION [None]
  - AMENORRHOEA [None]
  - SCHIZOPHRENIA [None]
